FAERS Safety Report 9853508 (Version 1)
Quarter: 2014Q1

REPORT INFORMATION
  Report Type: Spontaneous
  Country: US (occurrence: US)
  Receive Date: 20140129
  Receipt Date: 20140129
  Transmission Date: 20141002
  Serious: No
  Sender: FDA-Public Use
  Company Number: US-009507513-1401USA009613

PATIENT
  Age: 40 Year
  Sex: Male

DRUGS (2)
  1. CLARITIN-D-24 [Suspect]
     Indication: RESPIRATORY TRACT CONGESTION
     Dosage: UNK, UNKNOWN
     Route: 048
  2. CLARITIN-D-24 [Suspect]
     Indication: INFLUENZA

REACTIONS (4)
  - Therapeutic response unexpected [Unknown]
  - Dyspnoea [Unknown]
  - Off label use [Unknown]
  - Drug effect decreased [Unknown]
